FAERS Safety Report 23322959 (Version 1)
Quarter: 2023Q4

REPORT INFORMATION
  Report Type: Spontaneous
  Country: US (occurrence: None)
  Receive Date: 20231220
  Receipt Date: 20231220
  Transmission Date: 20240110
  Serious: No
  Sender: FDA-Public Use
  Company Number: US-ROCHE-3235131

PATIENT
  Age: 49 Year
  Sex: Male

DRUGS (1)
  1. RITUXAN [Suspect]
     Active Substance: RITUXIMAB
     Indication: Product used for unknown indication
     Route: 065

REACTIONS (5)
  - Rash [Unknown]
  - Abdominal pain [Unknown]
  - Renal disorder [Unknown]
  - Pulmonary mass [Unknown]
  - Neuropathy peripheral [Unknown]
